FAERS Safety Report 14766936 (Version 1)
Quarter: 2018Q2

REPORT INFORMATION
  Report Type: Spontaneous
  Country: IN (occurrence: IN)
  Receive Date: 20180417
  Receipt Date: 20180417
  Transmission Date: 20180711
  Serious: No
  Sender: FDA-Public Use
  Company Number: IN-LUPIN PHARMACEUTICALS INC.-2017-04818

PATIENT
  Age: 27 Year
  Sex: Male

DRUGS (5)
  1. PZIDE 750 [Concomitant]
     Indication: PRODUCT USED FOR UNKNOWN INDICATION
     Dosage: UNK, BID
     Route: 065
     Dates: start: 20170724
  2. R-CIN CAPS 600 MG [Suspect]
     Active Substance: RIFAMPIN
     Indication: TUBERCULOSIS
     Dosage: 1 DF, OD
     Route: 048
     Dates: start: 20170802
  3. R-CIN CAPS 450 MG [Suspect]
     Active Substance: RIFAMPIN
     Indication: TUBERCULOSIS
     Dosage: 1 DF, OD
     Route: 048
     Dates: start: 20170724, end: 20170801
  4. COMBUTOL 1000 [Concomitant]
     Active Substance: ETHAMBUTOL HYDROCHLORIDE
     Indication: PRODUCT USED FOR UNKNOWN INDICATION
     Dosage: OD
     Route: 048
     Dates: start: 20170724
  5. LEVOFLOX 750 [Concomitant]
     Indication: PRODUCT USED FOR UNKNOWN INDICATION
     Dosage: OD
     Route: 048
     Dates: start: 20170724

REACTIONS (2)
  - Pruritus generalised [Recovered/Resolved]
  - Pruritus genital [Not Recovered/Not Resolved]

NARRATIVE: CASE EVENT DATE: 20170728
